FAERS Safety Report 7101170-7 (Version None)
Quarter: 2010Q4

REPORT INFORMATION
  Report Type: 
  Country: None (occurrence: None)
  Receive Date: 20101105
  Receipt Date: 20101029
  Transmission Date: 20110411
  Serious: Yes (Other)
  Sender: FDA-Public Use
  Company Number: JHP201000337

PATIENT
  Age: 21 Year
  Sex: Male

DRUGS (1)
  1. KETALAR [Suspect]
     Indication: DRUG ABUSE
     Dosage: WHITE POWDER FORM - 2X/WEEK, INHALATION
     Route: 055

REACTIONS (9)
  - CYSTITIS ULCERATIVE [None]
  - HAEMATURIA [None]
  - HYDRONEPHROSIS [None]
  - HYDROURETER [None]
  - KIDNEY SMALL [None]
  - NOCTURIA [None]
  - POLLAKIURIA [None]
  - RENAL HYPERTROPHY [None]
  - SUPRAPUBIC PAIN [None]
